FAERS Safety Report 18838870 (Version 3)
Quarter: 2022Q2

REPORT INFORMATION
  Report Type: Spontaneous
  Country: US (occurrence: US)
  Receive Date: 20210203
  Receipt Date: 20220502
  Transmission Date: 20220721
  Serious: No
  Sender: FDA-Public Use
  Company Number: US-PFIZER INC-2020512326

PATIENT
  Age: 52 Year
  Sex: Female

DRUGS (2)
  1. XELJANZ XR [Suspect]
     Active Substance: TOFACITINIB CITRATE
     Dosage: 11 MG
     Dates: start: 20200923
  2. XELJANZ XR [Suspect]
     Active Substance: TOFACITINIB CITRATE
     Dosage: 11 MG, 1X/DAY
     Route: 048
     Dates: start: 20200925

REACTIONS (6)
  - Inflammation [Recovering/Resolving]
  - Peripheral swelling [Not Recovered/Not Resolved]
  - Arthropathy [Unknown]
  - Joint range of motion decreased [Unknown]
  - Product dose omission issue [Unknown]
  - Muscle spasms [Unknown]

NARRATIVE: CASE EVENT DATE: 20210101
